FAERS Safety Report 16520927 (Version 2)
Quarter: 2019Q3

REPORT INFORMATION
  Report Type: Report from Study
  Country: CH (occurrence: CH)
  Receive Date: 20190703
  Receipt Date: 20190826
  Transmission Date: 20191004
  Serious: Yes (Other)
  Sender: FDA-Public Use
  Company Number: CH-ROCHE-2347727

PATIENT
  Age: 71 Year
  Sex: Male

DRUGS (15)
  1. RANIBIZUMAB. [Suspect]
     Active Substance: RANIBIZUMAB
     Route: 065
     Dates: start: 20161219
  2. RANIBIZUMAB. [Suspect]
     Active Substance: RANIBIZUMAB
     Route: 065
     Dates: start: 20180115
  3. RANIBIZUMAB. [Suspect]
     Active Substance: RANIBIZUMAB
     Route: 065
     Dates: start: 20160815
  4. RANIBIZUMAB. [Suspect]
     Active Substance: RANIBIZUMAB
     Route: 065
     Dates: start: 20170220
  5. RANIBIZUMAB. [Suspect]
     Active Substance: RANIBIZUMAB
     Route: 065
     Dates: start: 20160613
  6. RANIBIZUMAB. [Suspect]
     Active Substance: RANIBIZUMAB
     Route: 065
     Dates: start: 20180910
  7. RANIBIZUMAB. [Suspect]
     Active Substance: RANIBIZUMAB
     Route: 065
     Dates: start: 20180525
  8. RANIBIZUMAB. [Suspect]
     Active Substance: RANIBIZUMAB
     Route: 065
     Dates: start: 20161017
  9. RANIBIZUMAB. [Suspect]
     Active Substance: RANIBIZUMAB
     Route: 065
     Dates: start: 20181105
  10. RANIBIZUMAB. [Suspect]
     Active Substance: RANIBIZUMAB
     Indication: PRODUCT USED FOR UNKNOWN INDICATION
     Route: 065
     Dates: start: 20131104
  11. RANIBIZUMAB. [Suspect]
     Active Substance: RANIBIZUMAB
     Route: 065
     Dates: start: 20170807, end: 20170807
  12. RANIBIZUMAB. [Suspect]
     Active Substance: RANIBIZUMAB
     Route: 065
     Dates: start: 20180723
  13. RANIBIZUMAB. [Suspect]
     Active Substance: RANIBIZUMAB
     Route: 065
     Dates: start: 20170508
  14. RANIBIZUMAB. [Suspect]
     Active Substance: RANIBIZUMAB
     Route: 065
     Dates: start: 20171030
  15. RANIBIZUMAB. [Suspect]
     Active Substance: RANIBIZUMAB
     Route: 065
     Dates: start: 20180326

REACTIONS (3)
  - Conjunctivitis [Unknown]
  - Eye swelling [Unknown]
  - Uveitis [Recovered/Resolved]

NARRATIVE: CASE EVENT DATE: 20170908
